FAERS Safety Report 6371818-3 (Version None)
Quarter: 2009Q3

REPORT INFORMATION
  Report Type: 
  Country: None (occurrence: None)
  Receive Date: 20090923
  Receipt Date: 20090917
  Transmission Date: 20100115
  Serious: Yes (Hospitalization)
  Sender: FDA-Public Use
  Company Number: US-SANOFI-SYNTHELABO-A03200904190

PATIENT
  Sex: Male

DRUGS (1)
  1. PLAVIX [Suspect]
     Indication: MYOCARDIAL INFARCTION
     Route: 048
     Dates: start: 20060801

REACTIONS (5)
  - ASTHENIA [None]
  - GASTRIC HAEMORRHAGE [None]
  - INFLUENZA [None]
  - OESOPHAGEAL RUPTURE [None]
  - VOMITING [None]
